FAERS Safety Report 4917901-8 (Version None)
Quarter: 2006Q1

REPORT INFORMATION
  Report Type: 
  Country: None (occurrence: None)
  Receive Date: 20060215
  Receipt Date: 20060206
  Transmission Date: 20060701
  Serious: Yes (Death)
  Sender: FDA-Public Use
  Company Number: FABR-11393

PATIENT
  Age: 58 Year
  Sex: Male

DRUGS (3)
  1. FABRAZYME [Suspect]
     Indication: FABRY'S DISEASE
     Dosage: 50 MG Q2WKS IV
     Route: 042
     Dates: start: 20041005, end: 20060124
  2. BETAMETHASONE [Concomitant]
  3. D-CHLORPHENIRAMINE [Concomitant]

REACTIONS (1)
  - CARDIAC ARREST [None]
